FAERS Safety Report 5044101-6 (Version None)
Quarter: 2006Q2

REPORT INFORMATION
  Report Type: 
  Country: None (occurrence: None)
  Receive Date: 20060601
  Receipt Date: 20060120
  Transmission Date: 20061013
  Serious: No
  Sender: FDA-Public Use
  Company Number: 2006PV007431

PATIENT
  Age: 49 Year
  Sex: Female

DRUGS (2)
  1. BYETTA [Suspect]
     Indication: DIABETES MELLITUS
     Dosage: SEE IMAGE
     Route: 058
     Dates: start: 20051217, end: 20060116
  2. BYETTA [Suspect]
     Indication: DIABETES MELLITUS
     Dosage: SEE IMAGE
     Route: 058
     Dates: start: 20060117

REACTIONS (1)
  - BLOOD GLUCOSE INCREASED [None]
